FAERS Safety Report 9158551 (Version 2)
Quarter: 2013Q2

REPORT INFORMATION
  Report Type: Spontaneous
  Country: US (occurrence: US)
  Receive Date: 20130312
  Receipt Date: 20130423
  Transmission Date: 20140414
  Serious: Yes (Other)
  Sender: FDA-Public Use
  Company Number: US-AMGEN-USASP2013014150

PATIENT
  Age: 39 Year
  Sex: Female
  Weight: 84.09 kg

DRUGS (3)
  1. NPLATE [Suspect]
     Indication: IDIOPATHIC THROMBOCYTOPENIC PURPURA
     Dosage: 810 MUG, QWK
     Dates: start: 201111
  2. NPLATE [Suspect]
  3. MULTIVITAMIN                       /00097801/ [Concomitant]

REACTIONS (1)
  - Platelet count decreased [Unknown]
